FAERS Safety Report 11300459 (Version 1)
Quarter: 2015Q3

REPORT INFORMATION
  Report Type: Spontaneous
  Country: US (occurrence: US)
  Receive Date: 20150722
  Receipt Date: 20150722
  Transmission Date: 20151125
  Serious: No
  Sender: FDA-Public Use
  Company Number: US-ELI_LILLY_AND_COMPANY-US201312003084

PATIENT
  Age: 67 Year
  Sex: Female

DRUGS (2)
  1. EVISTA [Suspect]
     Active Substance: RALOXIFENE HYDROCHLORIDE
     Indication: BREAST CANCER
     Dosage: UNK, UNKNOWN
     Route: 065
     Dates: start: 201309
  2. LEVOXYL [Concomitant]
     Active Substance: LEVOTHYROXINE SODIUM
     Indication: THYROID DISORDER
     Dosage: UNK, QD
     Route: 065

REACTIONS (1)
  - Lip haemorrhage [Unknown]

NARRATIVE: CASE EVENT DATE: 20131204
